FAERS Safety Report 8814775 (Version 1)
Quarter: 2012Q4

REPORT INFORMATION
  Report Type: Spontaneous
  Country: None (occurrence: None)
  Receive Date: 20120926
  Receipt Date: 20120926
  Transmission Date: 20130627
  Serious: Yes (Life-Threatening)
  Sender: FDA-Public Use
  Company Number: AUR-APL-2012-04039

PATIENT
  Age: 58 Year
  Sex: Female

DRUGS (10)
  1. METFORMIN (METFORMIN) [Suspect]
     Indication: DIABETES MELLITUS NON-INSULIN-DEPENDENT
     Route: 048
  2. METFORMIN (METFORMIN) [Suspect]
     Indication: DIABETES MELLITUS NON-INSULIN-DEPENDENT
  3. TAHOR [Suspect]
     Route: 048
  4. TAHOR [Suspect]
  5. TRIATEC [Suspect]
     Route: 048
  6. TRIATEC [Suspect]
  7. DIAMICRON [Suspect]
     Route: 048
  8. DIAMICRON [Suspect]
  9. LEVOTHYROXINE [Suspect]
  10. JANUVIA [Concomitant]

REACTIONS (2)
  - Pancreatitis acute [None]
  - Constipation [None]
